FAERS Safety Report 21256708 (Version 1)
Quarter: 2022Q3

REPORT INFORMATION
  Report Type: Spontaneous
  Country: US (occurrence: US)
  Receive Date: 20220826
  Receipt Date: 20220826
  Transmission Date: 20221027
  Serious: Yes (Hospitalization)
  Sender: FDA-Public Use
  Company Number: US-AMNEAL PHARMACEUTICALS-2022-AMRX-02342

PATIENT
  Sex: Male
  Weight: 92.971 kg

DRUGS (8)
  1. PRIMIDONE [Suspect]
     Active Substance: PRIMIDONE
     Indication: Product used for unknown indication
     Dosage: 250 MG ORAL TABLET
     Route: 048
  2. FLOXIN [Concomitant]
     Active Substance: OFLOXACIN
     Indication: Product used for unknown indication
     Route: 065
  3. LAMOTRIGINE [Concomitant]
     Active Substance: LAMOTRIGINE
     Indication: Product used for unknown indication
     Route: 065
  4. THYROXINE [Concomitant]
     Active Substance: LEVOTHYROXINE
     Indication: Product used for unknown indication
     Route: 065
  5. ZIPRASIDONE [Concomitant]
     Active Substance: ZIPRASIDONE
     Indication: Product used for unknown indication
     Route: 065
  6. LITHIUM [Concomitant]
     Active Substance: LITHIUM
     Indication: Product used for unknown indication
     Route: 065
  7. BROMAZEPAM [Concomitant]
     Active Substance: BROMAZEPAM
     Indication: Product used for unknown indication
     Route: 065
  8. TROLEN [Concomitant]
     Indication: Product used for unknown indication
     Route: 065

REACTIONS (7)
  - Dysphonia [Recovered/Resolved]
  - Tremor [Unknown]
  - Dysstasia [Unknown]
  - Oropharyngeal pain [Not Recovered/Not Resolved]
  - Gait disturbance [Recovered/Resolved]
  - Inability to crawl [Unknown]
  - Headache [Not Recovered/Not Resolved]
